FAERS Safety Report 16435171 (Version 1)
Quarter: 2019Q2

REPORT INFORMATION
  Report Type: Report from Study
  Country: US (occurrence: US)
  Receive Date: 20190614
  Receipt Date: 20190614
  Transmission Date: 20190711
  Serious: Yes (Death)
  Sender: FDA-Public Use
  Company Number: US-PFIZER INC-2019253954

PATIENT

DRUGS (3)
  1. VINCRISTINE SULFATE. [Suspect]
     Active Substance: VINCRISTINE SULFATE
     Indication: EYE DISORDER
     Dosage: CYCLIC (4-6 CYCLES OF ADJUVANT CHEMOTHERAPY)
  2. ETOPOSIDE. [Suspect]
     Active Substance: ETOPOSIDE
     Indication: EYE DISORDER
     Dosage: CYCLIC (4-6 CYCLES OF ADJUVANT CHEMOTHERAPY)
  3. CARBOPLATIN. [Suspect]
     Active Substance: CARBOPLATIN
     Indication: EYE DISORDER
     Dosage: CYCLIC (4-6 CYCLES OF ADJUVANT CHEMOTHERAPY)

REACTIONS (1)
  - Death [Fatal]
